FAERS Safety Report 18842503 (Version 1)
Quarter: 2021Q1

REPORT INFORMATION
  Report Type: Spontaneous
  Country: NL (occurrence: NL)
  Receive Date: 20210204
  Receipt Date: 20210204
  Transmission Date: 20210419
  Serious: Yes (Hospitalization, Other)
  Sender: FDA-Public Use
  Company Number: NL-TEVA-2020-NL-1835815

PATIENT
  Age: 29 Year
  Sex: Male

DRUGS (4)
  1. OMEPRAZOLE. [Concomitant]
     Active Substance: OMEPRAZOLE
     Dosage: 40 MG
     Route: 048
  2. SECUKINEMAB [Concomitant]
     Dosage: 150 MG
     Route: 058
     Dates: start: 2016
  3. NAPROXEN. [Concomitant]
     Active Substance: NAPROXEN
     Dosage: 250 MG
     Route: 048
  4. COPAXONE [Suspect]
     Active Substance: GLATIRAMER ACETATE
     Indication: MULTIPLE SCLEROSIS
     Route: 058
     Dates: start: 201512

REACTIONS (4)
  - Delusion [Unknown]
  - Psychotic disorder [Recovering/Resolving]
  - Hallucination [Unknown]
  - Mental disorder [Unknown]

NARRATIVE: CASE EVENT DATE: 202008
